FAERS Safety Report 11512646 (Version 1)
Quarter: 2015Q3

REPORT INFORMATION
  Report Type: Spontaneous
  Country: US (occurrence: None)
  Receive Date: 20150915
  Receipt Date: 20150915
  Transmission Date: 20151125
  Serious: Yes (Other)
  Sender: FDA-Public Use
  Company Number: None

PATIENT
  Age: 35 Year
  Sex: Female
  Weight: 65.77 kg

DRUGS (4)
  1. FLUOXETINE [Suspect]
     Active Substance: FLUOXETINE\FLUOXETINE HYDROCHLORIDE
  2. DAILY MULTIVITAMINS [Concomitant]
  3. PAIN MEDICATION [Concomitant]
     Active Substance: UNSPECIFIED INGREDIENT
  4. ANTIHISTAMINE [Concomitant]
     Active Substance: UNSPECIFIED INGREDIENT

REACTIONS (3)
  - Nausea [None]
  - Malaise [None]
  - Vomiting [None]
